FAERS Safety Report 22237883 (Version 3)
Quarter: 2025Q1

REPORT INFORMATION
  Report Type: Spontaneous
  Country: BE (occurrence: BE)
  Receive Date: 20230421
  Receipt Date: 20250226
  Transmission Date: 20250409
  Serious: Yes (Other)
  Sender: JOHNSON AND JOHNSON
  Company Number: BE-JNJFOC-20230441739

PATIENT
  Age: 74 Year
  Sex: Male
  Weight: 84 kg

DRUGS (9)
  1. ERLEADA [Suspect]
     Active Substance: APALUTAMIDE
     Indication: Prostate cancer
     Route: 048
     Dates: start: 20230215, end: 20230417
  2. ERLEADA [Suspect]
     Active Substance: APALUTAMIDE
     Indication: Prostate cancer metastatic
  3. ERLEADA [Suspect]
     Active Substance: APALUTAMIDE
     Indication: Metastases to bone
  4. ERLEADA [Suspect]
     Active Substance: APALUTAMIDE
     Indication: Metastases to lymph nodes
  5. TRIPTORELIN [Concomitant]
     Active Substance: TRIPTORELIN
     Dosage: EVERY THREE MONTHS
  6. NEBIVOLOL [Concomitant]
     Active Substance: NEBIVOLOL
  7. BROMAZEPAM [Concomitant]
     Active Substance: BROMAZEPAM
  8. AMLODIPINE BESYLATE [Concomitant]
     Active Substance: AMLODIPINE BESYLATE
  9. CALCIUM CARBONATE [Concomitant]
     Active Substance: CALCIUM CARBONATE

REACTIONS (1)
  - Hepatic cytolysis [Recovering/Resolving]
